FAERS Safety Report 6539857-7 (Version None)
Quarter: 2010Q1

REPORT INFORMATION
  Report Type: 
  Country: None (occurrence: None)
  Receive Date: 20100111
  Receipt Date: 20091228
  Transmission Date: 20100710
  Serious: Yes (Other)
  Sender: FDA-Public Use
  Company Number: SPV1-2009-02613

PATIENT
  Sex: Female

DRUGS (2)
  1. CARBATROL [Suspect]
     Indication: DRUG USE FOR UNKNOWN INDICATION
     Dosage: 200 MG, 4X/DAY:QID, ORAL; 26 PILLS INGESTED AT ONE TIME,
     Route: 048
     Dates: start: 20091207, end: 20091207
  2. CARBATROL [Suspect]
     Indication: DRUG USE FOR UNKNOWN INDICATION
     Dosage: 200 MG, 4X/DAY:QID, ORAL; 26 PILLS INGESTED AT ONE TIME,
     Route: 048
     Dates: start: 20091128

REACTIONS (4)
  - DEPRESSION [None]
  - DIZZINESS [None]
  - INTENTIONAL OVERDOSE [None]
  - TREMOR [None]
